FAERS Safety Report 16567350 (Version 1)
Quarter: 2019Q3

REPORT INFORMATION
  Report Type: Spontaneous
  Country: US (occurrence: US)
  Receive Date: 20190712
  Receipt Date: 20190712
  Transmission Date: 20191004
  Serious: No
  Sender: FDA-Public Use
  Company Number: US-BAUSCH-BL-2019-018524

PATIENT
  Sex: Male

DRUGS (1)
  1. VYZULTA [Suspect]
     Active Substance: LATANOPROSTENE BUNOD
     Indication: GLAUCOMA
     Dosage: 1 DROP IN EACH EYE AT NIGHT
     Route: 047

REACTIONS (4)
  - Eye pain [Unknown]
  - Dry eye [Unknown]
  - Abnormal sensation in eye [Unknown]
  - Product dose omission [Unknown]

NARRATIVE: CASE EVENT DATE: 20190623
